FAERS Safety Report 17284601 (Version 2)
Quarter: 2020Q1

REPORT INFORMATION
  Report Type: Spontaneous
  Country: AU (occurrence: AU)
  Receive Date: 20200117
  Receipt Date: 20200218
  Transmission Date: 20200409
  Serious: Yes (Hospitalization)
  Sender: FDA-Public Use
  Company Number: NVSC2020AU006201

PATIENT
  Sex: Female

DRUGS (1)
  1. FINGOLIMOD. [Suspect]
     Active Substance: FINGOLIMOD
     Indication: PRODUCT USED FOR UNKNOWN INDICATION
     Dosage: UNK
     Route: 065

REACTIONS (6)
  - Serology positive [Recovered/Resolved]
  - Meningitis cryptococcal [Recovered/Resolved]
  - Malaise [Recovered/Resolved]
  - Lumbar puncture [Recovered/Resolved]
  - Headache [Recovered/Resolved]
  - Culture positive [Recovered/Resolved]
